FAERS Safety Report 8214366-8 (Version None)
Quarter: 2012Q1

REPORT INFORMATION
  Report Type: 
  Country: None (occurrence: None)
  Receive Date: 20120316
  Receipt Date: 20120306
  Transmission Date: 20120608
  Serious: Yes (Hospitalization, Other)
  Sender: FDA-Public Use
  Company Number: US-JNJFOC-20120303017

PATIENT
  Sex: Female
  Weight: 117.03 kg

DRUGS (5)
  1. SIMPONI [Suspect]
     Indication: RHEUMATOID ARTHRITIS
     Route: 058
     Dates: start: 20120201
  2. CELEBREX [Concomitant]
     Indication: RHEUMATOID ARTHRITIS
  3. METHOTREXATE [Concomitant]
  4. SIMPONI [Suspect]
     Route: 058
     Dates: start: 20100101, end: 20110901
  5. OMEPRAZOLE [Concomitant]
     Indication: GASTROOESOPHAGEAL REFLUX DISEASE

REACTIONS (11)
  - VASCULAR PSEUDOANEURYSM [None]
  - ANKLE DEFORMITY [None]
  - CYSTITIS [None]
  - GLUCOSE TOLERANCE IMPAIRED [None]
  - FOOT DEFORMITY [None]
  - DECREASED APPETITE [None]
  - ARTERIAL OCCLUSIVE DISEASE [None]
  - WEIGHT LOSS POOR [None]
  - KIDNEY INFECTION [None]
  - IMMOBILE [None]
  - FATIGUE [None]
